FAERS Safety Report 16638930 (Version 1)
Quarter: 2019Q3

REPORT INFORMATION
  Report Type: Spontaneous
  Country: PL (occurrence: PL)
  Receive Date: 20190726
  Receipt Date: 20190726
  Transmission Date: 20191004
  Serious: Yes (Other)
  Sender: FDA-Public Use
  Company Number: PL-PFIZER INC-2019314372

PATIENT
  Sex: Female

DRUGS (2)
  1. ALPROSTADIL. [Suspect]
     Active Substance: ALPROSTADIL
     Indication: HYPOPLASTIC LEFT HEART SYNDROME
     Dosage: UNK
  2. ALPROSTADIL. [Suspect]
     Active Substance: ALPROSTADIL
     Dosage: UNK

REACTIONS (9)
  - Pyrexia [Recovered/Resolved]
  - Restlessness [Recovered/Resolved]
  - Diarrhoea [Recovered/Resolved]
  - Capillary fragility increased [Recovered/Resolved]
  - Irritability [Recovered/Resolved]
  - Sclerema [Recovered/Resolved]
  - Tachycardia [Recovered/Resolved]
  - Cartilage hypertrophy [Recovered/Resolved]
  - Hair growth abnormal [Recovered/Resolved]
